FAERS Safety Report 7359071-5 (Version None)
Quarter: 2011Q1

REPORT INFORMATION
  Report Type: 
  Country: None (occurrence: None)
  Receive Date: 20110317
  Receipt Date: 20110309
  Transmission Date: 20110831
  Serious: Yes (Hospitalization)
  Sender: FDA-Public Use
  Company Number: US-WATSON-2011-02639

PATIENT
  Age: 72 Year
  Sex: Female
  Weight: 66.213 kg

DRUGS (4)
  1. LISINOPRIL AND HYDROCHLOROTHIAZIDE [Suspect]
     Indication: FLUID RETENTION
  2. LISINOPRIL AND HYDROCHLOROTHIAZIDE [Suspect]
     Indication: BLOOD PRESSURE
     Dosage: 1 TABLET DAILY
     Route: 048
     Dates: start: 20110301, end: 20110309
  3. LISINOPRIL AND HYDROCHLOROTHIAZIDE [Suspect]
     Indication: FLUID RETENTION
     Dosage: 1 TABLET DAILY
     Route: 048
     Dates: start: 20050101
  4. LISINOPRIL AND HYDROCHLOROTHIAZIDE [Suspect]
     Indication: BLOOD PRESSURE
     Dosage: 1 TABLET, DAILY
     Route: 048
     Dates: start: 20110201

REACTIONS (18)
  - BURNING SENSATION [None]
  - BREAST SWELLING [None]
  - COUGH [None]
  - NAUSEA [None]
  - CHEST PAIN [None]
  - FATIGUE [None]
  - HYPOAESTHESIA [None]
  - MUSCULOSKELETAL PAIN [None]
  - CARDIAC FLUTTER [None]
  - BACK PAIN [None]
  - MYALGIA [None]
  - PRODUCT SUBSTITUTION ISSUE [None]
  - HEART RATE INCREASED [None]
  - DRUG INEFFECTIVE [None]
  - DIZZINESS [None]
  - PARAESTHESIA [None]
  - PRODUCT FORMULATION ISSUE [None]
  - MUSCULAR WEAKNESS [None]
